FAERS Safety Report 10709222 (Version 3)
Quarter: 2015Q2

REPORT INFORMATION
  Report Type: Report from Study
  Country: US (occurrence: US)
  Receive Date: 20150114
  Receipt Date: 20150403
  Transmission Date: 20150821
  Serious: Yes (Hospitalization, Other)
  Sender: FDA-Public Use
  Company Number: US-BIOGENIDEC-2015BI001734

PATIENT
  Age: 63 Year
  Sex: Female

DRUGS (1)
  1. TYSABRI [Suspect]
     Active Substance: NATALIZUMAB
     Indication: MULTIPLE SCLEROSIS
     Route: 042
     Dates: start: 20110817, end: 20150113

REACTIONS (6)
  - Pulmonary thrombosis [Recovered/Resolved]
  - Surgery [Unknown]
  - Thrombosis [Recovered/Resolved]
  - Knee arthroplasty [Unknown]
  - Sciatic nerve neuropathy [Not Recovered/Not Resolved]
  - Itching scar [Unknown]

NARRATIVE: CASE EVENT DATE: 201411
